FAERS Safety Report 5582827-6 (Version None)
Quarter: 2008Q1

REPORT INFORMATION
  Report Type: 
  Country: None (occurrence: None)
  Receive Date: 20080107
  Receipt Date: 20071225
  Transmission Date: 20080703
  Serious: Yes (Life-Threatening, Hospitalization)
  Sender: FDA-Public Use
  Company Number: JP-AMGEN-US213778

PATIENT
  Sex: Female
  Weight: 52 kg

DRUGS (9)
  1. ENBREL [Suspect]
     Indication: RHEUMATOID ARTHRITIS
     Route: 058
     Dates: start: 20050519
  2. RISEDRONATE SODIUM [Concomitant]
     Dosage: UNKNOWN
     Route: 048
  3. ALFAROL [Concomitant]
     Indication: OSTEOPOROSIS
     Route: 048
     Dates: start: 19990610
  4. GASTER [Concomitant]
     Indication: GASTRITIS
     Route: 048
     Dates: start: 20041021
  5. PREDONINE [Concomitant]
     Indication: RHEUMATOID ARTHRITIS
     Dosage: UNKNOWN
     Route: 048
  6. LOXONIN [Concomitant]
     Indication: RHEUMATOID ARTHRITIS
     Dosage: 60 MG
     Route: 048
     Dates: start: 20041021
  7. SELBEX [Concomitant]
     Indication: GASTRITIS
     Route: 048
     Dates: start: 20041021
  8. ISCOTIN [Concomitant]
     Indication: LATENT TUBERCULOSIS
     Route: 048
     Dates: start: 20050428, end: 20050616
  9. ASPARA-CA [Concomitant]
     Indication: OSTEOPOROSIS
     Route: 048
     Dates: start: 19990610

REACTIONS (4)
  - HAEMATOCRIT DECREASED [None]
  - HAEMOGLOBIN DECREASED [None]
  - INTRACRANIAL ANEURYSM [None]
  - SUBARACHNOID HAEMORRHAGE [None]
